FAERS Safety Report 14256414 (Version 3)
Quarter: 2018Q2

REPORT INFORMATION
  Report Type: Spontaneous
  Country: JP (occurrence: JP)
  Receive Date: 20171206
  Receipt Date: 20180425
  Transmission Date: 20180711
  Serious: Yes (Disabling)
  Sender: FDA-Public Use
  Company Number: JP-JNJFOC-20170613984

PATIENT
  Sex: Male
  Weight: 91 kg

DRUGS (66)
  1. ABILIFY [Suspect]
     Active Substance: ARIPIPRAZOLE
     Indication: PRODUCT USED FOR UNKNOWN INDICATION
     Route: 048
  2. CONTOMIN [Suspect]
     Active Substance: CHLORPROMAZINE
     Indication: PRODUCT USED FOR UNKNOWN INDICATION
     Route: 048
  3. GRANDAXIN [Concomitant]
     Active Substance: TOFISOPAM
     Route: 048
  4. GRANDAXIN [Concomitant]
     Active Substance: TOFISOPAM
     Route: 048
  5. AMOXAN [Concomitant]
     Active Substance: AMOXAPINE
     Route: 065
  6. AMOXAN [Concomitant]
     Active Substance: AMOXAPINE
     Route: 065
  7. INSIDE PAP [Concomitant]
     Route: 061
  8. SEPAZON [Concomitant]
     Active Substance: CLOXAZOLAM
     Route: 048
  9. SEPAZON [Concomitant]
     Active Substance: CLOXAZOLAM
     Route: 048
  10. SEVRETIN [Concomitant]
     Route: 048
  11. ROHYPNOL [Concomitant]
     Active Substance: FLUNITRAZEPAM
     Route: 048
  12. RISPERDAL [Suspect]
     Active Substance: RISPERIDONE
     Indication: SCHIZOPHRENIA
     Dosage: 2-5MG,1-3 TIMES A DAY
     Route: 048
     Dates: start: 20001113, end: 20090416
  13. MELLARIL-S [Suspect]
     Active Substance: THIORIDAZINE
     Indication: PRODUCT USED FOR UNKNOWN INDICATION
     Route: 048
  14. AKINETON [Concomitant]
     Active Substance: BIPERIDEN HYDROCHLORIDE
     Route: 048
  15. NOXTAL [Concomitant]
     Route: 048
  16. FRADIOMYCIN-GRAMICIDIN S [Concomitant]
     Route: 065
  17. EMPYNASE PD [Concomitant]
     Route: 048
  18. SEPAZON [Concomitant]
     Active Substance: CLOXAZOLAM
     Route: 048
  19. RISPERDAL [Suspect]
     Active Substance: RISPERIDONE
     Indication: SCHIZOPHRENIA
     Dosage: 1.5- 3 MG
     Route: 048
     Dates: start: 20100623, end: 20120717
  20. ABILIFY [Suspect]
     Active Substance: ARIPIPRAZOLE
     Indication: PRODUCT USED FOR UNKNOWN INDICATION
     Route: 048
  21. KESELAN [Suspect]
     Active Substance: HALOPERIDOL
     Indication: DELUSION
     Route: 048
  22. CREMIN [Suspect]
     Active Substance: MOSAPRAMINE
     Indication: HALLUCINATION, AUDITORY
     Route: 048
  23. AKINETON [Concomitant]
     Active Substance: BIPERIDEN HYDROCHLORIDE
     Route: 048
  24. AKINETON [Concomitant]
     Active Substance: BIPERIDEN HYDROCHLORIDE
     Route: 048
  25. NOXTAL [Concomitant]
     Route: 048
  26. DALMATE [Concomitant]
     Active Substance: FLURAZEPAM HYDROCHLORIDE
     Route: 048
  27. TREMIN [Concomitant]
     Active Substance: TRIHEXYPHENIDYL HYDROCHLORIDE
     Route: 048
  28. CLOPERASTINE FENDIZOATE [Concomitant]
     Route: 048
  29. LENDORMIN [Concomitant]
     Active Substance: BROTIZOLAM
     Route: 048
  30. CONTOMIN [Suspect]
     Active Substance: CHLORPROMAZINE
     Indication: PRODUCT USED FOR UNKNOWN INDICATION
     Route: 048
  31. PERPHENAZINE MALEATE [Suspect]
     Active Substance: PERPHENAZINE DIMALEATE
     Indication: PRODUCT USED FOR UNKNOWN INDICATION
     Route: 065
  32. DIAPAX [Suspect]
     Active Substance: DIAZEPAM
     Indication: PRODUCT USED FOR UNKNOWN INDICATION
     Route: 048
  33. XAFLOR [Concomitant]
     Route: 048
  34. CIPROFLOXACIN HYDROCHLORIDE. [Concomitant]
     Active Substance: CIPROFLOXACIN HYDROCHLORIDE
     Route: 048
  35. DEPAS [Concomitant]
     Active Substance: ETIZOLAM
     Route: 048
  36. TREMIN [Concomitant]
     Active Substance: TRIHEXYPHENIDYL HYDROCHLORIDE
     Route: 048
  37. POLLAKISU [Concomitant]
     Route: 048
  38. EPERISONE HYDROCHLORIDE [Suspect]
     Active Substance: EPERISONE HYDROCHLORIDE
     Indication: PRODUCT USED FOR UNKNOWN INDICATION
     Route: 048
  39. POVIDONE-IODINE. [Suspect]
     Active Substance: POVIDONE-IODINE
     Indication: PRODUCT USED FOR UNKNOWN INDICATION
     Route: 049
  40. DIAPAX [Suspect]
     Active Substance: DIAZEPAM
     Indication: PRODUCT USED FOR UNKNOWN INDICATION
     Route: 048
  41. DIAPAX [Suspect]
     Active Substance: DIAZEPAM
     Indication: PRODUCT USED FOR UNKNOWN INDICATION
     Route: 048
  42. SEPAZON [Concomitant]
     Active Substance: CLOXAZOLAM
     Route: 048
  43. MYONAL (MYO) [Concomitant]
     Active Substance: EPERISONE HYDROCHLORIDE
     Route: 048
  44. LODOPINE [Suspect]
     Active Substance: ZOTEPINE
     Indication: PRODUCT USED FOR UNKNOWN INDICATION
     Route: 048
  45. ZYPREXA [Suspect]
     Active Substance: OLANZAPINE
     Indication: PRODUCT USED FOR UNKNOWN INDICATION
     Route: 048
  46. NOXTAL [Concomitant]
     Route: 048
  47. MYONAL (MYO) [Concomitant]
     Active Substance: EPERISONE HYDROCHLORIDE
     Route: 048
  48. SEVRETIN [Concomitant]
     Route: 048
  49. SEVRETIN [Concomitant]
     Route: 048
  50. HY-STAMIN [Concomitant]
     Route: 065
  51. BEZATOL [Concomitant]
     Active Substance: BEZAFIBRATE
     Route: 048
  52. DEPAS [Concomitant]
     Active Substance: ETIZOLAM
     Route: 048
  53. DEPAS [Concomitant]
     Active Substance: ETIZOLAM
     Route: 048
  54. ROHYPNOL [Concomitant]
     Active Substance: FLUNITRAZEPAM
     Route: 048
  55. RISPERDAL [Suspect]
     Active Substance: RISPERIDONE
     Indication: SCHIZOPHRENIA
     Route: 048
     Dates: start: 20090417, end: 20100622
  56. KESELAN [Suspect]
     Active Substance: HALOPERIDOL
     Indication: HALLUCINATION, AUDITORY
     Route: 048
  57. ZYPREXA [Suspect]
     Active Substance: OLANZAPINE
     Indication: PRODUCT USED FOR UNKNOWN INDICATION
     Route: 048
  58. GRANDAXIN [Concomitant]
     Active Substance: TOFISOPAM
     Route: 048
  59. LOBU [Concomitant]
     Active Substance: LOBUCAVIR
     Route: 048
  60. SEPAZON [Concomitant]
     Active Substance: CLOXAZOLAM
     Route: 048
  61. SEPAZON [Concomitant]
     Active Substance: CLOXAZOLAM
     Route: 048
  62. CEPHADOL [Concomitant]
     Active Substance: DIPHENIDOL HYDROCHLORIDE
     Route: 048
  63. TREMIN [Concomitant]
     Active Substance: TRIHEXYPHENIDYL HYDROCHLORIDE
     Route: 048
  64. PHELLOBERIN [Concomitant]
     Active Substance: BERBERINE\GERANIUM
     Route: 048
  65. MYSLEE [Concomitant]
     Active Substance: ZOLPIDEM TARTRATE
     Route: 048
  66. LENDORMIN [Concomitant]
     Active Substance: BROTIZOLAM
     Route: 048

REACTIONS (2)
  - Tardive dyskinesia [Not Recovered/Not Resolved]
  - Dystonia [Not Recovered/Not Resolved]

NARRATIVE: CASE EVENT DATE: 2010
